FAERS Safety Report 23179934 (Version 1)
Quarter: 2023Q4

REPORT INFORMATION
  Report Type: Spontaneous
  Country: US (occurrence: None)
  Receive Date: 20231114
  Receipt Date: 20231114
  Transmission Date: 20240110
  Serious: Yes (Other)
  Sender: FDA-Public Use
  Company Number: US-ENDO-CASE-0041629

PATIENT

DRUGS (10)
  1. OPANA ER [Suspect]
     Active Substance: OXYMORPHONE HYDROCHLORIDE
  2. PERCOCET [Suspect]
     Active Substance: ACETAMINOPHEN\OXYCODONE HYDROCHLORIDE
  3. BUPRENORPHINE HYDROCHLORIDE [Suspect]
     Active Substance: BUPRENORPHINE HYDROCHLORIDE
  4. ENDOCET [Suspect]
     Active Substance: ACETAMINOPHEN\OXYCODONE HYDROCHLORIDE
  5. ACETAMINOPHEN\OXYCODONE HYDROCHLORIDE [Suspect]
     Active Substance: ACETAMINOPHEN\OXYCODONE HYDROCHLORIDE
  6. TRAMADOL HYDROCHLORIDE [Suspect]
     Active Substance: TRAMADOL HYDROCHLORIDE
  7. OXYMORPHONE HYDROCHLORIDE [Suspect]
     Active Substance: OXYMORPHONE HYDROCHLORIDE
  8. MORPHINE SULFATE [Suspect]
     Active Substance: MORPHINE SULFATE
  9. OPANA [Suspect]
     Active Substance: OXYMORPHONE HYDROCHLORIDE
  10. BELBUCA [Suspect]
     Active Substance: BUPRENORPHINE HYDROCHLORIDE

REACTIONS (16)
  - Dependence [Unknown]
  - Gastrointestinal disorder [Unknown]
  - Haemorrhage [Unknown]
  - Chills [Unknown]
  - Nausea [Unknown]
  - Constipation [Unknown]
  - Haemorrhoids [Unknown]
  - Headache [Unknown]
  - Cold sweat [Unknown]
  - Visual impairment [Unknown]
  - Dizziness [Unknown]
  - Vertigo [Unknown]
  - Fatigue [Unknown]
  - Depression [Unknown]
  - Anxiety [Unknown]
  - Nervous system disorder [Unknown]
